FAERS Safety Report 5558349-5 (Version None)
Quarter: 2007Q4

REPORT INFORMATION
  Report Type: 
  Country: None (occurrence: None)
  Receive Date: 20071214
  Receipt Date: 20071130
  Transmission Date: 20080405
  Serious: Yes (Hospitalization)
  Sender: FDA-Public Use
  Company Number: US-RANBAXY-2007RR-11462

PATIENT

DRUGS (4)
  1. GABAPENTIN [Suspect]
  2. PREDNISOLONE [Suspect]
     Indication: EYE INFECTION
  3. HEPARIN [Suspect]
     Route: 042
  4. WARFARIN SODIUM [Concomitant]
     Indication: PROPHYLAXIS

REACTIONS (1)
  - ANAPHYLACTIC REACTION [None]
